FAERS Safety Report 11457592 (Version 1)
Quarter: 2015Q3

REPORT INFORMATION
  Report Type: Spontaneous
  Country: IN (occurrence: None)
  Receive Date: 20150902
  Receipt Date: 20150902
  Transmission Date: 20151125
  Serious: Yes (Hospitalization)
  Sender: FDA-Public Use
  Company Number: 2015HINLIT0706

PATIENT
  Age: 16 Year
  Sex: Male

DRUGS (3)
  1. ZIDOVUDINE (ZIDOVUDINE) TABLET [Suspect]
     Active Substance: ZIDOVUDINE
     Indication: HIV INFECTION
     Route: 048
  2. ABACAVIR. [Suspect]
     Active Substance: ABACAVIR
     Indication: HIV INFECTION
     Dosage: 1 IN THE MORNING AND TWO
     Route: 048
  3. EFAVIRENZ (EFAVIRENZ) [Suspect]
     Active Substance: EFAVIRENZ
     Indication: HIV INFECTION
     Dosage: AT NIGHT
     Route: 048

REACTIONS (1)
  - Catatonia [None]
